FAERS Safety Report 5489196-0 (Version None)
Quarter: 2007Q4

REPORT INFORMATION
  Report Type: 
  Country: None (occurrence: None)
  Receive Date: 20071018
  Receipt Date: 20071008
  Transmission Date: 20080405
  Serious: Yes (Hospitalization)
  Sender: FDA-Public Use
  Company Number: US-JNJFOC-20071002161

PATIENT
  Sex: Male

DRUGS (21)
  1. REMICADE [Suspect]
     Route: 042
  2. REMICADE [Suspect]
     Indication: RHEUMATOID ARTHRITIS
     Route: 042
  3. AMIODARONE [Suspect]
     Indication: DRUG USE FOR UNKNOWN INDICATION
  4. BACTRIM DS [Concomitant]
  5. METHYLPREDNISOLONE [Concomitant]
     Indication: ULCERATIVE KERATITIS
  6. PREDNISONE [Concomitant]
     Indication: ULCERATIVE KERATITIS
  7. CELEBREX [Concomitant]
  8. CIPRO [Concomitant]
  9. DUONEB [Concomitant]
  10. FLEXERIL [Concomitant]
  11. VICODIN [Concomitant]
  12. HYDROCORTISONE [Concomitant]
     Route: 061
  13. HYDROCHLORZIDE [Concomitant]
  14. RANITADINE [Concomitant]
  15. LASIX [Concomitant]
  16. DOXEPIN HCL [Concomitant]
  17. ARAVA [Concomitant]
  18. MS CONTIN [Concomitant]
  19. POTASSIUM CHLORIDE [Concomitant]
  20. ERYTHROMYCIN [Concomitant]
  21. LEVITRA [Concomitant]

REACTIONS (5)
  - INTERSTITIAL LUNG DISEASE [None]
  - MYCOBACTERIUM FORTUITUM INFECTION [None]
  - PNEUMONIA [None]
  - RHEUMATOID ARTHRITIS [None]
  - ULCERATIVE KERATITIS [None]
